FAERS Safety Report 8612072-9 (Version None)
Quarter: 2012Q3

REPORT INFORMATION
  Report Type: 
  Country: None (occurrence: None)
  Receive Date: 20120822
  Receipt Date: 20120813
  Transmission Date: 20120928
  Serious: No
  Sender: FDA-Public Use
  Company Number: US-ASTRAZENECA-2012SE57157

PATIENT
  Sex: Female
  Weight: 90.7 kg

DRUGS (6)
  1. NEURONTIN [Concomitant]
     Indication: NEUROPATHY PERIPHERAL
  2. GLIPIZIDE [Concomitant]
     Indication: BLOOD GLUCOSE ABNORMAL
  3. EFFEXOR XR [Concomitant]
  4. OMEPRAZOLE [Suspect]
     Route: 048
  5. HYDROCHLOROTHIAZIDE [Concomitant]
  6. CRESTOR [Suspect]
     Indication: BLOOD CHOLESTEROL INCREASED
     Route: 048

REACTIONS (4)
  - ACTIVITIES OF DAILY LIVING IMPAIRED [None]
  - MYALGIA [None]
  - HEADACHE [None]
  - PAIN [None]
